FAERS Safety Report 8144290-0 (Version None)
Quarter: 2012Q1

REPORT INFORMATION
  Report Type: 
  Country: None (occurrence: None)
  Receive Date: 20120217
  Receipt Date: 20120215
  Transmission Date: 20120608
  Serious: Yes (Death)
  Sender: FDA-Public Use
  Company Number: ES-ROCHE-1005432

PATIENT
  Age: 77 Year
  Sex: Female
  Weight: 56.5 kg

DRUGS (13)
  1. PARACETAMOL [Concomitant]
     Indication: PAIN
     Route: 048
     Dates: start: 20090914
  2. PREDNISONE [Concomitant]
     Indication: RHEUMATOID ARTHRITIS
     Route: 048
     Dates: start: 20080630
  3. METAMIZOL [Concomitant]
     Indication: PAIN
     Dates: start: 20090914
  4. DOXAZOSINA [Concomitant]
     Indication: HYPERTENSION
     Route: 048
     Dates: start: 20100118
  5. LEDERFOLIN [Concomitant]
     Indication: RHEUMATOID ARTHRITIS
     Route: 048
     Dates: start: 20090223
  6. IBANDRONATE SODIUM [Concomitant]
     Indication: OSTEOPOROSIS
     Route: 048
     Dates: start: 20080630
  7. ACTEMRA [Suspect]
     Indication: RHEUMATOID ARTHRITIS
     Dosage: LAST DOSE PRIOR TO SAE-05-OCT-2011
     Route: 058
     Dates: start: 20110426
  8. PLACEBO [Suspect]
     Indication: RHEUMATOID ARTHRITIS
     Dosage: LAST DOSE PRIOR TO SAE: 14 SEP 2011.
     Route: 042
     Dates: start: 20110426
  9. METHOTREXATE [Concomitant]
     Indication: RHEUMATOID ARTHRITIS
     Route: 048
     Dates: start: 20090223
  10. CANDESARTAN CILEXETIL [Concomitant]
     Indication: HYPERTENSION
     Route: 048
     Dates: start: 20090914
  11. CELECOXIB [Concomitant]
     Indication: RHEUMATOID ARTHRITIS
     Route: 048
     Dates: start: 20100304
  12. CALCIFEROL [Concomitant]
     Indication: OSTEOPOROSIS
     Route: 048
     Dates: start: 20080630
  13. CALCIUM NOS/CHOLECALCIFEROL [Concomitant]
     Indication: CALCIUM DEFICIENCY
     Route: 048
     Dates: start: 20090914

REACTIONS (1)
  - SHOCK [None]
